FAERS Safety Report 6321571 (Version 17)
Quarter: 2013Q4

REPORT INFORMATION
  Report Type: Spontaneous
  Country: US (occurrence: US)
  Receive Date: 20070529
  Receipt Date: 20131113
  Transmission Date: 20140711
  Serious: Yes (Disabling, Other)
  Sender: FDA-Public Use
  Company Number: US-ROCHE-467356

PATIENT
  Age: 29 Year
  Sex: Female
  Weight: 67.6 kg

DRUGS (2)
  1. ACCUTANE [Suspect]
     Indication: ACNE
     Route: 048
     Dates: start: 199401, end: 199404
  2. ACCUTANE [Suspect]
     Route: 048
     Dates: start: 200106, end: 200110

REACTIONS (22)
  - Crohn^s disease [Not Recovered/Not Resolved]
  - Inflammatory bowel disease [Unknown]
  - Colitis ulcerative [Not Recovered/Not Resolved]
  - Colitis [Unknown]
  - Thyroid neoplasm [Unknown]
  - Hypothyroidism [Unknown]
  - Breast neoplasm [Unknown]
  - Follicular thyroid cancer [Unknown]
  - Autoimmune thyroiditis [Not Recovered/Not Resolved]
  - Anxiety [Unknown]
  - Fear [Unknown]
  - Fatigue [Unknown]
  - Mood swings [Unknown]
  - Arthritis [Unknown]
  - Arthralgia [Not Recovered/Not Resolved]
  - Hyperglycaemia [Unknown]
  - Spondylolisthesis [Unknown]
  - Anaemia [Unknown]
  - Irritable bowel syndrome [Unknown]
  - Back pain [Unknown]
  - Sciatica [Unknown]
  - Cardiac murmur [Unknown]
